FAERS Safety Report 7148477-5 (Version None)
Quarter: 2010Q4

REPORT INFORMATION
  Report Type: 
  Country: None (occurrence: None)
  Receive Date: 20101209
  Receipt Date: 20101203
  Transmission Date: 20110411
  Serious: Yes (Death, Hospitalization, Other)
  Sender: FDA-Public Use
  Company Number: PHEH2008US03999

PATIENT
  Sex: Male
  Weight: 93.6 kg

DRUGS (71)
  1. ZOMETA [Suspect]
     Indication: MULTIPLE MYELOMA
     Dosage: UNK, EVERY 28 DAYS
     Dates: start: 20030519, end: 20050321
  2. LORTAB [Concomitant]
  3. DOXYCYCLINE [Concomitant]
  4. PERIDEX [Concomitant]
  5. CLEOCIN [Concomitant]
  6. K-TAB [Concomitant]
     Dosage: UNK
  7. LASIX [Concomitant]
     Dosage: 20 MG / QD
     Route: 048
  8. BEXTRA [Concomitant]
  9. INVANZ [Concomitant]
     Dosage: 1000 MG, UNK
     Route: 042
  10. MOBIC [Concomitant]
     Dosage: 7.5 MG, BID
     Route: 048
  11. TRENTAL ^ALBERT-ROUSSEL^ [Concomitant]
     Indication: TRISMUS
  12. PREDNISONE [Concomitant]
     Dosage: 5 MG, UNK
  13. DIAMOX SRC [Concomitant]
     Dosage: 500 MG, UNK
  14. BIAXIN [Concomitant]
     Dosage: 500 MG, UNK
  15. FLOXIN ^DAIICHI^ [Concomitant]
     Dosage: 300 MG, UNK
  16. ZITHROMAX [Concomitant]
  17. POTASSIUM CHLORIDE [Concomitant]
     Dosage: UNK
  18. ZOLOFT [Concomitant]
     Dosage: 50 MG / DAILY
     Route: 048
  19. ATENOLOL [Concomitant]
     Dosage: 50-25 MG / QD
     Route: 048
  20. NEXIUM [Concomitant]
     Dosage: UNK
  21. ATIVAN [Concomitant]
     Dosage: UNK
  22. M.V.I. [Concomitant]
     Dosage: UNK
  23. HEPARIN LOCK FLUSH [Concomitant]
     Dosage: UNK
  24. REGLAN [Concomitant]
     Dosage: UNK
  25. PROTONIX [Concomitant]
     Dosage: UNK
  26. SENNA [Concomitant]
     Dosage: UNK
  27. HYDROMORPHONE HCL [Concomitant]
     Dosage: UNK
  28. FOLIC ACID [Concomitant]
     Dosage: UNK
  29. TRENTAL ^ALBERT-ROUSSEL^ [Concomitant]
     Dosage: UNK
  30. NYSTATIN [Concomitant]
     Dosage: UNK
  31. METOCLOPRAMIDE [Concomitant]
     Dosage: 10 MG / 2 ML
  32. COUMADIN [Concomitant]
     Dosage: UNK
  33. LIPITOR [Concomitant]
     Dosage: 40 MG / QD
     Route: 048
  34. DEMEROL [Concomitant]
     Dosage: UNK
  35. VERSED [Concomitant]
     Dosage: UNK
  36. PLENDIL [Concomitant]
     Dosage: 5 MG / QD
     Route: 048
  37. PRILOSEC [Concomitant]
     Dosage: 20 MG / QD
     Route: 048
  38. NORVASC [Concomitant]
     Dosage: UNK
  39. ASPIRIN [Concomitant]
  40. ZOLOFT [Concomitant]
  41. ASPIRIN [Concomitant]
  42. ACETAMINOPHEN AND HYDROCODONE BITARTRATE [Concomitant]
     Dosage: 5 MG, PRN
     Route: 048
  43. TRIAMCINOLONE [Concomitant]
     Dosage: 0.1 %, UNK
     Route: 061
  44. FLECTOR [Concomitant]
     Dosage: 1.3 %, QD
     Route: 062
  45. OMEPRAZOLE [Concomitant]
     Dosage: 20 MG, BID
     Route: 048
  46. SERTRALINE HYDROCHLORIDE [Concomitant]
     Dosage: 100 MG, UNK
     Route: 048
  47. MELOXICAM [Concomitant]
     Dosage: 15 MG, UNK
     Route: 048
  48. LISINOPRIL [Concomitant]
     Dosage: 2.5 MG, QD
     Route: 048
  49. CHLORHEXIDINE DENTAL ^ACO^ [Concomitant]
     Dosage: .12 %, TID
     Route: 049
  50. FAMOTIDINE [Concomitant]
     Dosage: 20 MG, QD
     Route: 048
  51. TEMAZEPAM [Concomitant]
     Dosage: 30 MG, BID
     Route: 048
  52. SULFAMETHOXAZOLE [Concomitant]
     Dosage: 1 UNK, BID
     Route: 048
  53. PREVACID [Concomitant]
     Dosage: 30 MG, QD
     Route: 048
  54. ZELNORM                                 /USA/ [Concomitant]
     Dosage: 6 MG, UNK
     Route: 048
  55. KETOCONAZOLE [Concomitant]
     Dosage: 200 MG, UNK
     Route: 048
  56. GENTAMICIN [Concomitant]
     Dosage: 0.1 %, UNK
     Route: 061
  57. PENTOXIFYLLINE [Concomitant]
     Dosage: 400 MG, UNK
     Route: 048
  58. ZYRTEC [Concomitant]
     Dosage: 10 MG, UNK
     Route: 048
  59. CEFACLOR [Concomitant]
     Dosage: 500 MG, UNK
     Route: 048
  60. DOXAZOSIN [Concomitant]
     Dosage: 4 MG, UNK
     Route: 048
  61. NABUMETONE [Concomitant]
     Dosage: 750 MG, UNK
     Route: 048
  62. KEFLEX [Concomitant]
  63. PENICILLIN ^GRUNENTHAL^ [Concomitant]
  64. PROTONIX [Concomitant]
  65. ZELNORM                                 /CAN/ [Concomitant]
  66. REGLAN [Concomitant]
  67. ASCORBIC ACID [Concomitant]
  68. COLACE [Concomitant]
  69. CARDURA                                 /IRE/ [Concomitant]
  70. DILAUDID [Concomitant]
  71. MAGIC MOUTHWASH [Concomitant]

REACTIONS (97)
  - ABDOMINAL PAIN [None]
  - ABDOMINAL PAIN UPPER [None]
  - ADMINISTRATION SITE INFECTION [None]
  - ANAEMIA [None]
  - ANXIETY [None]
  - APHAGIA [None]
  - ARTERIOSCLEROSIS [None]
  - ATELECTASIS [None]
  - BENIGN TUMOUR EXCISION [None]
  - BILE DUCT STONE [None]
  - BLOOD BILIRUBIN INCREASED [None]
  - BLOOD CHOLESTEROL INCREASED [None]
  - BONE DEBRIDEMENT [None]
  - BONE DISORDER [None]
  - BONE FRAGMENTATION [None]
  - BONE MARROW RETICULIN FIBROSIS [None]
  - BONE SWELLING [None]
  - CARDIAC FAILURE CONGESTIVE [None]
  - CARDIOMEGALY [None]
  - CARTILAGE ATROPHY [None]
  - CATARACT [None]
  - CATARACT OPERATION [None]
  - CELLULITIS [None]
  - CERVICAL MYELOPATHY [None]
  - CHEST PAIN [None]
  - CHOLELITHIASIS [None]
  - DEATH [None]
  - DENTAL CARIES [None]
  - DENTAL OPERATION [None]
  - DYSPNOEA [None]
  - EMOTIONAL DISTRESS [None]
  - EROSIVE OESOPHAGITIS [None]
  - EXOSTOSIS [None]
  - FIBROSIS [None]
  - FISTULA DISCHARGE [None]
  - GRANULOMA [None]
  - HAEMANGIOMA [None]
  - HAEMORRHOIDS [None]
  - HEADACHE [None]
  - HEART VALVE INCOMPETENCE [None]
  - HEPATIC ENZYME INCREASED [None]
  - HEPATOMEGALY [None]
  - HICCUPS [None]
  - HYPOAESTHESIA FACIAL [None]
  - HYPOAESTHESIA ORAL [None]
  - HYPOXIA [None]
  - INDURATION [None]
  - INFECTION [None]
  - INFLAMMATION [None]
  - INJURY [None]
  - INTERVERTEBRAL DISC DEGENERATION [None]
  - INTRAOCULAR LENS IMPLANT [None]
  - JAUNDICE CHOLESTATIC [None]
  - JAW DISORDER [None]
  - LIPASE INCREASED [None]
  - LOOSE BODY IN JOINT [None]
  - MARROW HYPERPLASIA [None]
  - MASS [None]
  - MENTAL STATUS CHANGES [None]
  - MOUTH ULCERATION [None]
  - MUSCLE TIGHTNESS [None]
  - NAUSEA [None]
  - NECROSIS [None]
  - OESOPHAGEAL ULCER [None]
  - OSTEOARTHRITIS [None]
  - OSTEONECROSIS OF JAW [None]
  - OSTEORADIONECROSIS [None]
  - OXYGEN SATURATION DECREASED [None]
  - PAIN [None]
  - PAIN IN JAW [None]
  - PANCREATITIS [None]
  - PARAESTHESIA ORAL [None]
  - PAROTIDECTOMY [None]
  - PAROTITIS [None]
  - PHYSICAL DISABILITY [None]
  - PLASMACYTOMA [None]
  - PROSTATIC SPECIFIC ANTIGEN INCREASED [None]
  - PURULENT DISCHARGE [None]
  - RADIOTHERAPY [None]
  - RENAL CYST [None]
  - ROTATOR CUFF SYNDROME [None]
  - SCAR [None]
  - SEQUESTRECTOMY [None]
  - SINUS BRADYCARDIA [None]
  - SINUS TACHYCARDIA [None]
  - SINUSITIS [None]
  - SOMNOLENCE [None]
  - SPINAL OSTEOARTHRITIS [None]
  - SUPRAVENTRICULAR EXTRASYSTOLES [None]
  - TONGUE INJURY [None]
  - TOOTH ABSCESS [None]
  - TOOTH EROSION [None]
  - TOOTH EXTRACTION [None]
  - TOOTHACHE [None]
  - TRISMUS [None]
  - VASCULITIS [None]
  - WOUND INFECTION STAPHYLOCOCCAL [None]
